FAERS Safety Report 11144819 (Version 3)
Quarter: 2015Q2

REPORT INFORMATION
  Report Type: Report from Study
  Country: CA (occurrence: CA)
  Receive Date: 20150528
  Receipt Date: 20150625
  Transmission Date: 20150821
  Serious: Yes (Hospitalization)
  Sender: FDA-Public Use
  Company Number: CA-BIOGENIDEC-2015BI067598

PATIENT
  Age: 41 Year
  Sex: Female

DRUGS (6)
  1. TYSABRI [Suspect]
     Active Substance: NATALIZUMAB
     Indication: RELAPSING-REMITTING MULTIPLE SCLEROSIS
     Route: 042
     Dates: start: 20111025
  2. TEGRETOL [Concomitant]
     Active Substance: CARBAMAZEPINE
  3. AMANTADINE [Concomitant]
     Active Substance: AMANTADINE
  4. LYRICA [Concomitant]
     Active Substance: PREGABALIN
  5. SEROQUEL [Concomitant]
     Active Substance: QUETIAPINE FUMARATE
  6. EFFEXOR [Concomitant]
     Active Substance: VENLAFAXINE HYDROCHLORIDE

REACTIONS (1)
  - Status migrainosus [Recovered/Resolved]

NARRATIVE: CASE EVENT DATE: 20150321
